FAERS Safety Report 9482817 (Version 2)
Quarter: 2013Q3

REPORT INFORMATION
  Report Type: Report from Study
  Country: US (occurrence: US)
  Receive Date: 20130828
  Receipt Date: 20130903
  Transmission Date: 20140515
  Serious: Yes (Other)
  Sender: FDA-Public Use
  Company Number: US-ABBOTT-13P-163-1135529-00

PATIENT
  Age: 55 Year
  Sex: Female
  Weight: 86.26 kg

DRUGS (5)
  1. HUMIRA [Suspect]
     Indication: ANKYLOSING SPONDYLITIS
     Dates: start: 20110323, end: 201304
  2. HUMIRA [Suspect]
     Dates: start: 20130818
  3. DICLOFENAC [Concomitant]
     Indication: ANKYLOSING SPONDYLITIS
  4. CYMBALTA [Concomitant]
     Indication: ANKYLOSING SPONDYLITIS
  5. CYMBALTA [Concomitant]
     Indication: PAIN

REACTIONS (10)
  - Chest wall mass [Unknown]
  - Musculoskeletal chest pain [Not Recovered/Not Resolved]
  - Desmoid tumour [Unknown]
  - Weight increased [Not Recovered/Not Resolved]
  - Pain [Not Recovered/Not Resolved]
  - Poor quality sleep [Not Recovered/Not Resolved]
  - Hot flush [Not Recovered/Not Resolved]
  - Ankylosing spondylitis [Unknown]
  - Desmoid tumour [Unknown]
  - Haemochromatosis [Not Recovered/Not Resolved]
